FAERS Safety Report 17454483 (Version 1)
Quarter: 2020Q1

REPORT INFORMATION
  Report Type: Spontaneous
  Country: JP (occurrence: JP)
  Receive Date: 20200225
  Receipt Date: 20200225
  Transmission Date: 20200409
  Serious: Yes (Other)
  Sender: FDA-Public Use
  Company Number: JP-009507513-2002JPN002220J

PATIENT
  Age: 8 Decade
  Sex: Male

DRUGS (1)
  1. BELSOMRA [Suspect]
     Active Substance: SUVOREXANT
     Indication: INSOMNIA
     Dosage: 15 MILLIGRAM, PRN, AROUND 9 PM
     Route: 048

REACTIONS (2)
  - Somnolence [Recovered/Resolved]
  - Loss of consciousness [Unknown]
